FAERS Safety Report 20784953 (Version 1)
Quarter: 2022Q2

REPORT INFORMATION
  Report Type: Spontaneous
  Country: US (occurrence: US)
  Receive Date: 20220504
  Receipt Date: 20220504
  Transmission Date: 20220721
  Serious: No
  Sender: FDA-Public Use
  Company Number: US-UPSHER-SMITH LABORATORIES, LLC-2022USL00132

PATIENT
  Age: 59 Year
  Sex: Male

DRUGS (6)
  1. MORPHINE [Suspect]
     Active Substance: MORPHINE
     Indication: Arthralgia
     Dosage: 15 MG, 4X/DAY (EVERY 6 HOURS)
     Route: 048
     Dates: start: 20211221
  2. MORPHINE SULFATE [Suspect]
     Active Substance: MORPHINE SULFATE
     Indication: Arthralgia
     Dosage: UNK, DAILY
     Dates: start: 202109
  3. METHYLPHENIDATE [Concomitant]
     Active Substance: METHYLPHENIDATE
  4. VITAMIN D [Concomitant]
     Active Substance: VITAMIN D NOS
  5. TESTOSTERONE [Concomitant]
     Active Substance: TESTOSTERONE
  6. FAMOTIDINE [Concomitant]
     Active Substance: FAMOTIDINE

REACTIONS (2)
  - Drug screen negative [Unknown]
  - Drug ineffective [Not Recovered/Not Resolved]

NARRATIVE: CASE EVENT DATE: 20211201
